FAERS Safety Report 25951394 (Version 1)
Quarter: 2025Q4

REPORT INFORMATION
  Report Type: Spontaneous
  Country: EU (occurrence: EU)
  Receive Date: 20251023
  Receipt Date: 20251023
  Transmission Date: 20260118
  Serious: Yes (Hospitalization)
  Sender: BAXTER
  Company Number: EU-MLMSERVICE-20251008-PI670834-00273-1

PATIENT
  Age: 65 Year
  Sex: Male

DRUGS (7)
  1. PROPOFOL [Suspect]
     Active Substance: PROPOFOL
     Indication: Induction of anaesthesia
     Dosage: GENERAL ANESTHESIA WAS INDUCED WITH INTRAVENOUS ADMINISTRATION OF 200 MG PROPOFOL
     Route: 042
  2. PROPOFOL [Suspect]
     Active Substance: PROPOFOL
     Dosage: ANESTHESIA WAS MAINTAINED WITH A CONTINUOUS LOW DOSE PROPOFOL INFUSION TITRATED BETWEEN 2 AND 3 MG/K
     Route: 042
  3. PROPOFOL [Suspect]
     Active Substance: PROPOFOL
     Dosage: THE RATE WAS SPARSELY ADJUSTED IN 0.5 MG/KG/H STEPS.
     Route: 042
  4. FENTANYL [Suspect]
     Active Substance: FENTANYL
     Indication: Induction of anaesthesia
     Dosage: THE INITIAL 100 ?G FENTANYL DOSE WAS ADMINISTERED AT INDUCTION
     Route: 042
  5. FENTANYL [Suspect]
     Active Substance: FENTANYL
     Dosage: THE PATIENT RECEIVED AN ADDITIONAL DOSE OF 150 ?G DURING THE COURSE OF SURGERY
     Route: 042
  6. ROCURONIUM [Suspect]
     Active Substance: ROCURONIUM BROMIDE
     Indication: Induction of anaesthesia
     Dosage: 50 MG
     Route: 042
  7. ACETAMINOPHEN [Concomitant]
     Active Substance: ACETAMINOPHEN
     Route: 041

REACTIONS (2)
  - Heart rate increased [Recovered/Resolved]
  - Hypotension [Recovered/Resolved]
